FAERS Safety Report 6723459-3 (Version None)
Quarter: 2010Q2

REPORT INFORMATION
  Report Type: 
  Country: None (occurrence: None)
  Receive Date: 20100511
  Receipt Date: 20100429
  Transmission Date: 20101027
  Serious: Yes (Hospitalization)
  Sender: FDA-Public Use
  Company Number: 1-22440671

PATIENT
  Age: 75 Year
  Sex: Male

DRUGS (4)
  1. ACETAZOLAMIDE [Suspect]
     Indication: GLAUCOMA
     Dosage: 125 MG 2X/DAY, ORAL
     Route: 048
  2. AMILORIDE HYDROCHLORIDE [Concomitant]
  3. HYDROCHLOROTHIAZIDE [Concomitant]
  4. PREDNISONE [Concomitant]

REACTIONS (2)
  - FAECALOMA [None]
  - ILEUS PARALYTIC [None]
